FAERS Safety Report 4612801-5 (Version None)
Quarter: 2005Q1

REPORT INFORMATION
  Report Type: 
  Country: None (occurrence: None)
  Receive Date: 20050318
  Receipt Date: 20050124
  Transmission Date: 20050727
  Serious: Yes (Other)
  Sender: FDA-Public Use
  Company Number: PHNR2005AU00488

PATIENT
  Age: 6 Year
  Sex: Female

DRUGS (4)
  1. TACROLIMUS [Suspect]
     Dates: start: 20030701, end: 20041126
  2. NEORAL [Suspect]
     Indication: LIVER TRANSPLANT
     Dosage: 45 MG, BID
     Route: 048
     Dates: start: 19990325, end: 20030703
  3. NEORAL [Suspect]
     Dosage: 45 MG, BID
     Dates: start: 20041126
  4. PREDNISOLONE [Concomitant]

REACTIONS (3)
  - GINGIVAL HYPERPLASIA [None]
  - MENTAL DISORDER [None]
  - SUICIDAL IDEATION [None]
